FAERS Safety Report 7962942-X (Version None)
Quarter: 2011Q4

REPORT INFORMATION
  Report Type: 
  Country: None (occurrence: None)
  Receive Date: 20111207
  Receipt Date: 20111124
  Transmission Date: 20120403
  Serious: Yes (Other)
  Sender: FDA-Public Use
  Company Number: JP-ELI_LILLY_AND_COMPANY-JP201111007652

PATIENT
  Age: 43 Year
  Sex: Male

DRUGS (4)
  1. PIOGLITAZONE [Concomitant]
  2. METFORMIN HCL [Concomitant]
  3. BYETTA [Suspect]
     Dosage: 10 UG, BID
     Route: 058
  4. GLIMEPIRIDE [Concomitant]

REACTIONS (3)
  - ASTHMA [None]
  - DECREASED APPETITE [None]
  - GASTROOESOPHAGEAL REFLUX DISEASE [None]
